FAERS Safety Report 8321720-2 (Version None)
Quarter: 2012Q2

REPORT INFORMATION
  Report Type: 
  Country: None (occurrence: None)
  Receive Date: 20120430
  Receipt Date: 20120420
  Transmission Date: 20120825
  Serious: Yes (Other)
  Sender: FDA-Public Use
  Company Number: US-SANOFI-AVENTIS-2012SA028033

PATIENT
  Age: 80 Year
  Sex: Female
  Weight: 57.6 kg

DRUGS (4)
  1. LYRICA [Suspect]
     Indication: NEUROPATHY PERIPHERAL
     Dates: start: 20110101
  2. VALSARTAN [Concomitant]
     Indication: BLOOD PRESSURE ABNORMAL
  3. LASIX [Suspect]
  4. ROSUVASTATIN [Concomitant]
     Indication: BLOOD CHOLESTEROL ABNORMAL

REACTIONS (3)
  - SWELLING [None]
  - DRUG INEFFECTIVE [None]
  - COLON CANCER [None]
